FAERS Safety Report 16392395 (Version 2)
Quarter: 2019Q4

REPORT INFORMATION
  Report Type: Spontaneous
  Country: CA (occurrence: CA)
  Receive Date: 20190605
  Receipt Date: 20191004
  Transmission Date: 20200122
  Serious: Yes (Hospitalization, Other)
  Sender: FDA-Public Use
  Company Number: CA-AUROBINDO-AUR-APL-2019-030266

PATIENT
  Age: 45 Year
  Sex: Female
  Weight: 74 kg

DRUGS (3)
  1. STELARA [Suspect]
     Active Substance: USTEKINUMAB
     Indication: CROHN^S DISEASE
     Dosage: 90 MILLIGRAM, 1 EVERY 8 WEEKS
     Route: 058
  2. CIPROFLOXACIN. [Suspect]
     Active Substance: CIPROFLOXACIN
     Indication: ABSCESS INTESTINAL
     Dosage: 50 MILLIGRAM, (1 EVERY 2 DAYS)
     Route: 048
  3. METRONIDAZOLE. [Suspect]
     Active Substance: METRONIDAZOLE
     Indication: ABSCESS INTESTINAL
     Dosage: 250 MILLIGRAM (EVERY 2 DAYS)
     Route: 065

REACTIONS (5)
  - Abscess intestinal [Recovered/Resolved]
  - Vertigo [Recovered/Resolved]
  - Irritable bowel syndrome [Not Recovered/Not Resolved]
  - Postoperative ileus [Recovered/Resolved]
  - Haemorrhoids [Recovered/Resolved]
